FAERS Safety Report 9413391 (Version 1)
Quarter: 2013Q3

REPORT INFORMATION
  Report Type: Spontaneous
  Country: FR (occurrence: None)
  Receive Date: 20130709
  Receipt Date: 20130709
  Transmission Date: 20140515
  Serious: Yes (Other)
  Sender: FDA-Public Use
  Company Number: FR-20130280

PATIENT
  Age: 62 Year
  Sex: Female

DRUGS (4)
  1. DOTAREM [Suspect]
     Indication: NUCLEAR MAGNETIC RESONANCE IMAGING BRAIN
     Dosage: 14 ML (14 ML, 1 IN 1 D)?INTRAVENOUS (NOT OTHERWISE SPECIFIED)
     Route: 042
     Dates: start: 20130426, end: 20130426
  2. KARDEGIC [Suspect]
     Dosage: 160 MG (160 MG, 1 IN 1 D) ORAL
     Route: 048
  3. TAHOR [Suspect]
     Indication: PRODUCT USED FOR UNKNOWN INDICATION
     Dosage: 10 MG (10 MG, 1 IN 1 D) ORAL
     Route: 048
  4. GLUCOSE (GLUCOSE) (GLUCOSE) [Concomitant]

REACTIONS (4)
  - Tongue oedema [None]
  - Nausea [None]
  - Pruritus [None]
  - Swelling face [None]
